FAERS Safety Report 4974206-7 (Version None)
Quarter: 2006Q2

REPORT INFORMATION
  Report Type: 
  Country: None (occurrence: None)
  Receive Date: 20060417
  Receipt Date: 20051221
  Transmission Date: 20061013
  Serious: Yes (Hospitalization, Other)
  Sender: FDA-Public Use
  Company Number: US-MERCK-0512USA03451

PATIENT
  Age: 79 Year
  Sex: Male

DRUGS (2)
  1. VIOXX [Suspect]
     Indication: ARTHROPATHY
     Route: 048
     Dates: start: 20000601, end: 20031201
  2. ASPIRIN [Concomitant]
     Route: 065

REACTIONS (6)
  - ABDOMINAL PAIN UPPER [None]
  - ARTHROPATHY [None]
  - GASTRIC ULCER HAEMORRHAGE [None]
  - GASTROINTESTINAL DISORDER [None]
  - MELAENA [None]
  - MYOCARDIAL INFARCTION [None]
